FAERS Safety Report 16515730 (Version 1)
Quarter: 2019Q3

REPORT INFORMATION
  Report Type: Spontaneous
  Country: ES (occurrence: ES)
  Receive Date: 20190702
  Receipt Date: 20190702
  Transmission Date: 20191004
  Serious: Yes (Life-Threatening, Hospitalization)
  Sender: FDA-Public Use
  Company Number: PHHY2019ES151238

PATIENT
  Age: 38 Year
  Sex: Male

DRUGS (1)
  1. ALPRAZOLAM. [Suspect]
     Active Substance: ALPRAZOLAM
     Indication: SUICIDE ATTEMPT
     Dosage: UNK UNK, QD
     Route: 048
     Dates: start: 20190418, end: 20190418

REACTIONS (3)
  - Depressed level of consciousness [Recovered/Resolved]
  - Rhabdomyolysis [Recovering/Resolving]
  - Peripheral nerve paresis [Not Recovered/Not Resolved]

NARRATIVE: CASE EVENT DATE: 20190418
